FAERS Safety Report 6715014-6 (Version None)
Quarter: 2010Q2

REPORT INFORMATION
  Report Type: 
  Country: None (occurrence: None)
  Receive Date: 20100507
  Receipt Date: 20100503
  Transmission Date: 20101027
  Serious: Yes (Death)
  Sender: FDA-Public Use
  Company Number: FR-ASTRAZENECA-2010SE19935

PATIENT
  Age: 78 Year
  Sex: Female

DRUGS (9)
  1. CARBOCAINE [Suspect]
     Route: 042
  2. METFORMIN [Concomitant]
     Route: 048
  3. GLYBURIDE [Concomitant]
     Route: 048
  4. KARDEGIC [Concomitant]
     Route: 048
  5. CRESTOR [Concomitant]
     Route: 048
  6. MEDIATENSYL [Concomitant]
     Route: 048
  7. AMLOR [Concomitant]
     Route: 048
  8. INSULIN [Concomitant]
  9. SEASONAL FLU VACCINE [Concomitant]
     Route: 048

REACTIONS (3)
  - CARDIAC FAILURE [None]
  - DYSPNOEA [None]
  - MULTI-ORGAN FAILURE [None]
